FAERS Safety Report 4936600-X (Version None)
Quarter: 2006Q1

REPORT INFORMATION
  Report Type: 
  Country: None (occurrence: None)
  Receive Date: 20060307
  Receipt Date: 20050915
  Transmission Date: 20060701
  Serious: Yes (Hospitalization)
  Sender: FDA-Public Use
  Company Number: US-MERCK-0509USA02429

PATIENT
  Age: 62 Year
  Sex: Male
  Weight: 101 kg

DRUGS (4)
  1. VIOXX [Suspect]
     Indication: ARTHRALGIA
     Route: 048
     Dates: start: 20020302
  2. VIOXX [Suspect]
     Route: 048
     Dates: start: 20020627, end: 20040930
  3. VIOXX [Suspect]
     Indication: OSTEOARTHRITIS
     Route: 048
     Dates: start: 20020302
  4. VIOXX [Suspect]
     Route: 048
     Dates: start: 20020627, end: 20040930

REACTIONS (6)
  - DEPRESSION [None]
  - DIARRHOEA [None]
  - HEADACHE [None]
  - MYOCARDIAL INFARCTION [None]
  - NEPHROLITHIASIS [None]
  - POLYP [None]
